FAERS Safety Report 20855141 (Version 1)
Quarter: 2022Q2

REPORT INFORMATION
  Report Type: Spontaneous
  Country: US (occurrence: US)
  Receive Date: 20220520
  Receipt Date: 20220520
  Transmission Date: 20220720
  Serious: No
  Sender: FDA-Public Use
  Company Number: US-PFIZER INC-202200729133

PATIENT
  Age: 54 Year
  Sex: Female

DRUGS (8)
  1. IBRANCE [Suspect]
     Active Substance: PALBOCICLIB
     Dosage: 125 MG, (ORALLY DAILY FOR 21 DAYS, THEN 7 DAYS)
     Route: 048
     Dates: start: 20220408
  2. LETROZOLE [Concomitant]
     Active Substance: LETROZOLE
  3. DECADRON [Concomitant]
     Active Substance: DEXAMETHASONE
  4. ACETAMINOPHEN\OXYCODONE HYDROCHLORIDE\OXYCODONE TEREPHTHALATE [Concomitant]
     Active Substance: ACETAMINOPHEN\OXYCODONE HYDROCHLORIDE\OXYCODONE TEREPHTHALATE
  5. ZOFRAN ODT [Concomitant]
     Active Substance: ONDANSETRON HYDROCHLORIDE
  6. MORPHINE [Concomitant]
     Active Substance: MORPHINE
  7. VITAMIN C + ROSEHIP [Concomitant]
  8. SENNA-S [DOCUSATE SODIUM;SENNA ALEXANDRINA] [Concomitant]

REACTIONS (2)
  - White blood cell count decreased [Not Recovered/Not Resolved]
  - Dyspepsia [Not Recovered/Not Resolved]
